FAERS Safety Report 7906339-7 (Version None)
Quarter: 2011Q4

REPORT INFORMATION
  Report Type: 
  Country: None (occurrence: None)
  Receive Date: 20111109
  Receipt Date: 20111109
  Transmission Date: 20120403
  Serious: No
  Sender: FDA-Public Use
  Company Number: None

PATIENT
  Age: 55 Year
  Sex: Female
  Weight: 67.1324 kg

DRUGS (1)
  1. OXCARBAZEPINE [Suspect]
     Indication: PAIN
     Dosage: 300MG 2X DAY

REACTIONS (10)
  - DEPRESSION [None]
  - VISION BLURRED [None]
  - HEADACHE [None]
  - TREMOR [None]
  - CONFUSIONAL STATE [None]
  - NEPHROLITHIASIS [None]
  - DIPLOPIA [None]
  - DRUG INEFFECTIVE [None]
  - RASH [None]
  - SUICIDAL IDEATION [None]
